FAERS Safety Report 7933856-6 (Version None)
Quarter: 2011Q4

REPORT INFORMATION
  Report Type: 
  Country: None (occurrence: None)
  Receive Date: 20111122
  Receipt Date: 20111110
  Transmission Date: 20120403
  Serious: Yes (Hospitalization)
  Sender: FDA-Public Use
  Company Number: DK-ROCHE-1012751

PATIENT
  Sex: Female
  Weight: 99 kg

DRUGS (5)
  1. XENICAL [Suspect]
     Indication: OBESITY
     Dosage: STYRKE: 120 MG, PHARMACEUTICAL FORM: 5
     Route: 048
     Dates: start: 20111013
  2. ALPRAZOLAM [Concomitant]
     Indication: ANXIETY
     Dates: start: 19990101
  3. VALDOXAN [Suspect]
     Indication: DEPRESSION
     Dosage: STYRKE: 25 MG, PHARMACEUTICAL FORM:245
     Route: 048
     Dates: start: 20110907, end: 20111012
  4. CITALOPRAM HYDROBROMIDE [Concomitant]
     Indication: DEPRESSION
     Dates: start: 19990101
  5. LANSOPRAZOLE [Concomitant]
     Indication: GASTRITIS
     Dates: start: 20110601

REACTIONS (3)
  - ANAEMIA HAEMOLYTIC AUTOIMMUNE [None]
  - THROMBOSIS [None]
  - DEAFNESS UNILATERAL [None]
